FAERS Safety Report 8430397-7 (Version None)
Quarter: 2012Q2

REPORT INFORMATION
  Report Type: 
  Country: None (occurrence: None)
  Receive Date: 20120612
  Receipt Date: 20120601
  Transmission Date: 20120825
  Serious: Yes (Hospitalization)
  Sender: FDA-Public Use
  Company Number: GB-ACTELION-A-CH2011-53317

PATIENT
  Sex: Female

DRUGS (6)
  1. WARFARIN SODIUM [Concomitant]
  2. FUROSEMIDE [Concomitant]
  3. ALBUTEROL [Concomitant]
  4. TRACLEER [Suspect]
     Indication: PULMONARY ARTERIAL HYPERTENSION
     Dosage: 125 MG, BID
     Route: 048
  5. AMITRIPTYLINE HCL [Concomitant]
  6. IPRATROPIUM BROMIDE [Concomitant]

REACTIONS (3)
  - ENDOTRACHEAL INTUBATION [None]
  - BLOOD CULTURE POSITIVE [None]
  - ENDOCARDITIS STAPHYLOCOCCAL [None]
